FAERS Safety Report 10521325 (Version 1)
Quarter: 2014Q4

REPORT INFORMATION
  Report Type: Spontaneous
  Country: GR (occurrence: GR)
  Receive Date: 20141016
  Receipt Date: 20141016
  Transmission Date: 20150528
  Serious: Yes (Other)
  Sender: FDA-Public Use
  Company Number: GR-ROCHE-1471985

PATIENT
  Age: 50 Year
  Sex: Female

DRUGS (1)
  1. ZELBORAF [Suspect]
     Active Substance: VEMURAFENIB
     Indication: MALIGNANT MELANOMA STAGE IV
     Route: 048
     Dates: start: 20140828, end: 20140908

REACTIONS (2)
  - Dermatitis [Recovering/Resolving]
  - Dermatitis infected [Recovering/Resolving]

NARRATIVE: CASE EVENT DATE: 20140907
